FAERS Safety Report 19271981 (Version 1)
Quarter: 2021Q2

REPORT INFORMATION
  Report Type: Spontaneous
  Country: US (occurrence: US)
  Receive Date: 20210519
  Receipt Date: 20210519
  Transmission Date: 20210717
  Serious: No
  Sender: FDA-Public Use
  Company Number: US-NOVEN PHARMACEUTICALS, INC.-2021US002054

PATIENT
  Age: 9 Year
  Sex: Male

DRUGS (5)
  1. OXTELLAR XR [Concomitant]
     Active Substance: OXCARBAZEPINE
     Indication: ANGER
  2. CLONIDINE. [Concomitant]
     Active Substance: CLONIDINE
     Indication: IMPULSE-CONTROL DISORDER
  3. CLONIDINE. [Concomitant]
     Active Substance: CLONIDINE
     Indication: ANGER
  4. OXTELLAR XR [Concomitant]
     Active Substance: OXCARBAZEPINE
     Indication: IMPULSE-CONTROL DISORDER
  5. DAYTRANA [Suspect]
     Active Substance: METHYLPHENIDATE
     Indication: ATTENTION DEFICIT HYPERACTIVITY DISORDER
     Dosage: 30MG/9HR, UNK
     Route: 062
     Dates: start: 202008, end: 202103

REACTIONS (2)
  - Therapeutic response unexpected [Recovered/Resolved]
  - No adverse event [Unknown]
